FAERS Safety Report 18809755 (Version 4)
Quarter: 2021Q2

REPORT INFORMATION
  Report Type: Spontaneous
  Country: US (occurrence: US)
  Receive Date: 20210129
  Receipt Date: 20210610
  Transmission Date: 20210717
  Serious: Yes (Hospitalization, Other)
  Sender: FDA-Public Use
  Company Number: US-BAYER-2021-033155

PATIENT
  Sex: Female

DRUGS (1)
  1. MIRENA [Suspect]
     Active Substance: LEVONORGESTREL
     Dosage: 20 ?G PER DAY, CONTINUOUSLY
     Route: 015

REACTIONS (9)
  - Amniorrhexis [None]
  - Drug ineffective [None]
  - Amniorrhoea [None]
  - Complication of device removal [None]
  - Embedded device [None]
  - Uterine infection [None]
  - Device breakage [None]
  - Abortion spontaneous [None]
  - Pregnancy with contraceptive device [None]
